FAERS Safety Report 17007900 (Version 1)
Quarter: 2019Q4

REPORT INFORMATION
  Report Type: Spontaneous
  Country: IT (occurrence: IT)
  Receive Date: 20191108
  Receipt Date: 20191108
  Transmission Date: 20200122
  Serious: Yes (Other)
  Sender: FDA-Public Use
  Company Number: IT-ASTRAZENECA-2019SF55101

PATIENT
  Age: 89 Year
  Sex: Female

DRUGS (6)
  1. TAVOR (LORAZEPAM) [Suspect]
     Active Substance: LORAZEPAM
     Indication: SEDATION
     Route: 048
     Dates: start: 20190902, end: 20190903
  2. LASIX [Concomitant]
     Active Substance: FUROSEMIDE
     Dosage: 1.5DF UNKNOWN
     Route: 048
  3. QUETIAPINE FUMARATE. [Suspect]
     Active Substance: QUETIAPINE FUMARATE
     Indication: AGITATION
     Dosage: 100.0MG ONCE/SINGLE ADMINISTRATION
     Route: 048
     Dates: start: 20190902, end: 20190903
  4. TALOFEN [Suspect]
     Active Substance: PROMAZINE HYDROCHLORIDE
     Indication: SEDATION
     Dosage: 5.0GTT ONCE/SINGLE ADMINISTRATION
     Route: 048
     Dates: start: 20190902, end: 20190903
  5. HALDOL [Suspect]
     Active Substance: HALOPERIDOL
     Indication: SEDATION
     Dosage: 10.0GTT ONCE/SINGLE ADMINISTRATION
     Route: 048
     Dates: start: 20190902, end: 20190903
  6. AMLODIPINE BESILATE [Suspect]
     Active Substance: AMLODIPINE BESYLATE
     Indication: HYPERTENSION
     Route: 048

REACTIONS (4)
  - Vasculitis [Recovering/Resolving]
  - Oedema peripheral [Recovering/Resolving]
  - Overdose [Recovering/Resolving]
  - Sedation [Recovering/Resolving]

NARRATIVE: CASE EVENT DATE: 20190903
